FAERS Safety Report 17698934 (Version 3)
Quarter: 2020Q2

REPORT INFORMATION
  Report Type: Spontaneous
  Country: US (occurrence: US)
  Receive Date: 20200423
  Receipt Date: 20200518
  Transmission Date: 20200714
  Serious: Yes (Hospitalization, Other)
  Sender: FDA-Public Use
  Company Number: US-HORIZON-ACT-0182-2020

PATIENT
  Age: 24 Year
  Sex: Female

DRUGS (5)
  1. ACTIMMUNE [Suspect]
     Active Substance: INTERFERON GAMMA-1B
     Indication: NEUTROPHIL FUNCTION DISORDER
     Dosage: 0.5ML THREE TIMES WEEKLY
     Route: 030
     Dates: start: 202002
  2. ERTAPENEM. [Suspect]
     Active Substance: ERTAPENEM SODIUM
     Indication: PRODUCT USED FOR UNKNOWN INDICATION
  3. LOVENOX [Concomitant]
     Active Substance: ENOXAPARIN SODIUM
     Indication: COAGULOPATHY
     Dosage: BID
  4. SALINE [Concomitant]
     Active Substance: SODIUM CHLORIDE
  5. BENADRYL [Concomitant]
     Active Substance: DIPHENHYDRAMINE HYDROCHLORIDE
     Indication: HYPERSENSITIVITY
     Route: 042

REACTIONS (9)
  - Pyrexia [Recovered/Resolved]
  - Headache [Unknown]
  - Off label use [Unknown]
  - Swollen tongue [Recovered/Resolved]
  - Pulmonary embolism [Recovering/Resolving]
  - Breast abscess [Not Recovered/Not Resolved]
  - Arthralgia [Unknown]
  - Feeling abnormal [Unknown]
  - Bone pain [Unknown]

NARRATIVE: CASE EVENT DATE: 20200418
